FAERS Safety Report 18739545 (Version 1)
Quarter: 2021Q1

REPORT INFORMATION
  Report Type: Spontaneous
  Country: US (occurrence: US)
  Receive Date: 20210114
  Receipt Date: 20210114
  Transmission Date: 20210419
  Serious: No
  Sender: FDA-Public Use
  Company Number: US-DEXPHARM-20200260

PATIENT
  Age: 70 Year
  Sex: Male
  Weight: 95.24 kg

DRUGS (1)
  1. OMEPRAZOLE DELAYED RELEASE ORALLY DISINTEGRATING STRAWBERRY TABLETS 20 [Suspect]
     Active Substance: OMEPRAZOLE
     Indication: DYSPEPSIA
     Dosage: 20 MG, SINGLE
     Route: 048
     Dates: start: 20200312, end: 20200312

REACTIONS (3)
  - Foreign body [Recovered/Resolved]
  - Glossodynia [Recovered/Resolved]
  - Tongue rough [Recovered/Resolved]

NARRATIVE: CASE EVENT DATE: 20200312
